FAERS Safety Report 23746753 (Version 2)
Quarter: 2024Q2

REPORT INFORMATION
  Report Type: Spontaneous
  Country: SK (occurrence: SK)
  Receive Date: 20240416
  Receipt Date: 20240429
  Transmission Date: 20240716
  Serious: Yes (Other)
  Sender: FDA-Public Use
  Company Number: SK-MEDO2008-000522

PATIENT
  Age: 80 Year
  Sex: Male

DRUGS (1)
  1. DICLOFENAC [Suspect]
     Active Substance: DICLOFENAC
     Indication: Spinal pain
     Dosage: MAXIMAL DOSE OF 150 MG /DAY
     Route: 065

REACTIONS (2)
  - Duodenal stenosis [Unknown]
  - Gastrointestinal erosion [Unknown]
